FAERS Safety Report 17310004 (Version 1)
Quarter: 2020Q1

REPORT INFORMATION
  Report Type: Spontaneous
  Country: GR (occurrence: GR)
  Receive Date: 20200123
  Receipt Date: 20200123
  Transmission Date: 20200409
  Serious: Yes (Other)
  Sender: FDA-Public Use
  Company Number: GR-MYLANLABS-2020M1006848

PATIENT
  Age: 52 Year
  Sex: Male

DRUGS (4)
  1. CIPROFLOXACIN. [Suspect]
     Active Substance: CIPROFLOXACIN
     Indication: BACTERIAL PROSTATITIS
     Dosage: UNK
  2. LEVOFLOXACIN. [Suspect]
     Active Substance: LEVOFLOXACIN
     Indication: BACTERIAL PROSTATITIS
     Dosage: UNK
  3. TRIMETHOPRIM SULFAMETHOXAZOLE [Suspect]
     Active Substance: SULFAMETHOXAZOLE\TRIMETHOPRIM
     Indication: BACTERIAL PROSTATITIS
     Dosage: UNK
  4. FOSFOMYCIN [Suspect]
     Active Substance: FOSFOMYCIN
     Indication: BACTERIAL PROSTATITIS
     Dosage: UNK

REACTIONS (1)
  - Pathogen resistance [Unknown]
